FAERS Safety Report 25674709 (Version 1)
Quarter: 2025Q3

REPORT INFORMATION
  Report Type: Spontaneous
  Country: EU (occurrence: EU)
  Receive Date: 20250813
  Receipt Date: 20250813
  Transmission Date: 20251020
  Serious: Yes (Other)
  Sender: RANBAXY
  Company Number: EU-SUN PHARMACEUTICAL INDUSTRIES LTD-2025RR-521778

PATIENT
  Age: 57 Year
  Sex: Male
  Weight: 65 kg

DRUGS (7)
  1. BUPROPION [Suspect]
     Active Substance: BUPROPION
     Indication: Product used for unknown indication
     Dosage: DAILY DOSE: 300 MG EVERY 1 DAY
     Route: 065
     Dates: start: 20241104
  2. BUPROPION [Suspect]
     Active Substance: BUPROPION
     Dosage: DAILY DOSE: 150 MG EVERY 1 DAY
     Route: 065
     Dates: start: 20241014
  3. BUPROPION [Suspect]
     Active Substance: BUPROPION
     Dosage: DAILY DOSE: 150 MG EVERY 1 DAY
     Route: 065
     Dates: start: 20241222
  4. METHYLPHENIDATE [Concomitant]
     Active Substance: METHYLPHENIDATE
     Indication: Product used for unknown indication
     Dosage: 20 MILLIGRAM, DAILY
     Route: 065
  5. METHYLPHENIDATE [Concomitant]
     Active Substance: METHYLPHENIDATE
     Dosage: DO NOT TAKE DURING THE INTAKE OF BUPROPION DAILY DOSE: 5 MG EVERY 1 DAY
     Route: 065
  6. LEVOTHYROXINE SODIUM [Concomitant]
     Active Substance: LEVOTHYROXINE SODIUM
     Indication: Product used for unknown indication
     Dosage: DAILY DOSE: 75 UG EVERY 1 DAY
     Route: 065
  7. PANTOPRAZOLE SODIUM [Concomitant]
     Active Substance: PANTOPRAZOLE SODIUM
     Indication: Product used for unknown indication
     Dosage: DAILY DOSE: 40 MG EVERY 1 DAY
     Route: 065

REACTIONS (2)
  - Leukopenia [Recovered/Resolved]
  - Eosinopenia [Recovered/Resolved]

NARRATIVE: CASE EVENT DATE: 20241201
